FAERS Safety Report 24652581 (Version 1)
Quarter: 2024Q4

REPORT INFORMATION
  Report Type: Spontaneous
  Country: US (occurrence: None)
  Receive Date: 20241122
  Receipt Date: 20241122
  Transmission Date: 20250115
  Serious: Yes (Hospitalization)
  Sender: Public
  Company Number: None

PATIENT
  Age: 7 Year
  Sex: Male
  Weight: 42 kg

DRUGS (3)
  1. CISPLATIN [Suspect]
     Active Substance: CISPLATIN
     Dates: end: 20200821
  2. ZINECARD [Suspect]
     Active Substance: DEXRAZOXANE HYDROCHLORIDE
     Dates: start: 20200309
  3. DOXORUBICIN HYDROCHLORIDE [Suspect]
     Active Substance: DOXORUBICIN HYDROCHLORIDE
     Dates: end: 20200309

REACTIONS (6)
  - Leukaemia [None]
  - Acute myeloid leukaemia [None]
  - Metastases to lung [None]
  - Liver transplant [None]
  - Pulmonary mass [None]
  - Disease recurrence [None]

NARRATIVE: CASE EVENT DATE: 20241108
